FAERS Safety Report 6677169-1 (Version None)
Quarter: 2010Q2

REPORT INFORMATION
  Report Type: 
  Country: None (occurrence: None)
  Receive Date: 20100412
  Receipt Date: 20091021
  Transmission Date: 20101027
  Serious: Yes (Congenital Anomaly)
  Sender: FDA-Public Use
  Company Number: US-MERCK-0906USA05680

PATIENT
  Sex: Male
  Weight: 3 kg

DRUGS (6)
  1. ISENTRESS [Suspect]
     Dates: start: 20090126, end: 20090224
  2. ISENTRESS [Suspect]
     Dates: start: 20090327
  3. TRUVADA [Suspect]
     Dates: start: 20090327
  4. TRUVADA [Suspect]
     Dates: start: 20090126, end: 20090224
  5. RETROVIR [Concomitant]
     Dates: start: 20090618
  6. RETROVIR [Concomitant]
     Dates: start: 20091013, end: 20091013

REACTIONS (1)
  - CLEFT LIP AND PALATE [None]
